FAERS Safety Report 9518810 (Version 1)
Quarter: 2013Q3

REPORT INFORMATION
  Report Type: Spontaneous
  Country: US (occurrence: US)
  Receive Date: 20130912
  Receipt Date: 20130912
  Transmission Date: 20140515
  Serious: No
  Sender: FDA-Public Use
  Company Number: US-ABBOTT-12P-163-0998761-00

PATIENT
  Sex: Male
  Weight: 130.3 kg

DRUGS (5)
  1. DEPAKOTE SPRINKLE [Suspect]
     Indication: CONVULSION
  2. THORAZINE [Suspect]
     Indication: FLUSHING
     Dates: start: 2009
  3. THORAZINE [Suspect]
     Indication: ABNORMAL BEHAVIOUR
  4. LYRICA [Concomitant]
     Indication: PRODUCT USED FOR UNKNOWN INDICATION
  5. NAMENDA [Concomitant]
     Indication: PRODUCT USED FOR UNKNOWN INDICATION

REACTIONS (10)
  - Cushing^s syndrome [Unknown]
  - Flushing [Unknown]
  - Weight increased [Unknown]
  - Skin striae [Unknown]
  - Acne [Unknown]
  - Dizziness [Unknown]
  - Cortisol free urine abnormal [Unknown]
  - Blood cortisol abnormal [Unknown]
  - Laboratory test interference [Unknown]
  - Abnormal behaviour [Unknown]
